FAERS Safety Report 7758204-6 (Version None)
Quarter: 2011Q3

REPORT INFORMATION
  Report Type: 
  Country: None (occurrence: None)
  Receive Date: 20110919
  Receipt Date: 20110908
  Transmission Date: 20111222
  Serious: Yes (Hospitalization)
  Sender: FDA-Public Use
  Company Number: IE-SP-2011-08444

PATIENT
  Age: 56 Year
  Sex: Male

DRUGS (2)
  1. TICE BCG [Suspect]
     Indication: BLADDER CANCER
     Route: 043
  2. TICE BCG [Suspect]
     Dosage: NOT REPORTED
     Route: 043

REACTIONS (11)
  - JAUNDICE [None]
  - MULTI-ORGAN FAILURE [None]
  - HYPOXIA [None]
  - OLIGURIA [None]
  - MYALGIA [None]
  - HYPOTENSION [None]
  - HEPATORENAL FAILURE [None]
  - PYREXIA [None]
  - HYPERSENSITIVITY [None]
  - CYSTITIS [None]
  - OCULAR ICTERUS [None]
